FAERS Safety Report 4349872-X (Version None)
Quarter: 2004Q2

REPORT INFORMATION
  Report Type: 
  Country: None (occurrence: None)
  Receive Date: 20040428
  Receipt Date: 20040428
  Transmission Date: 20050107
  Serious: No
  Sender: FDA-Public Use
  Company Number: None

PATIENT
  Age: 50 Year
  Sex: Female
  Weight: 65.318 kg

DRUGS (5)
  1. DEXAMETHASONE 10 MG/ML [Suspect]
     Dosage: 10 MG IV PB PR CHEMO
     Route: 042
     Dates: start: 20040426
  2. CARBOPLATIN [Suspect]
     Dosage: 176 MG IVPB Q WK X 3
     Route: 042
     Dates: start: 20040426
  3. AREDIA [Concomitant]
  4. ALOXI [Concomitant]
  5. TAXOL [Concomitant]

REACTIONS (8)
  - ABDOMINAL PAIN [None]
  - CHEST DISCOMFORT [None]
  - HEARING IMPAIRED [None]
  - HYPERHIDROSIS [None]
  - HYPOTENSION [None]
  - NAUSEA [None]
  - VOMITING [None]
  - WHEEZING [None]
